FAERS Safety Report 18454733 (Version 2)
Quarter: 2020Q4

REPORT INFORMATION
  Report Type: Report from Study
  Country: US (occurrence: US)
  Receive Date: 20201102
  Receipt Date: 20201110
  Transmission Date: 20210114
  Serious: Yes (Hospitalization, Other)
  Sender: FDA-Public Use
  Company Number: NVSC2020US291401

PATIENT
  Sex: Female

DRUGS (2)
  1. PIQRAY [Suspect]
     Active Substance: ALPELISIB
     Indication: PRODUCT USED FOR UNKNOWN INDICATION
     Dosage: UNK
     Route: 048
  2. PIQRAY [Suspect]
     Active Substance: ALPELISIB
     Route: 048

REACTIONS (8)
  - Metastases to bone [Unknown]
  - Flank pain [Unknown]
  - Respiratory tract irritation [Unknown]
  - Vision blurred [Unknown]
  - Near death experience [Unknown]
  - Chills [Unknown]
  - Rash [Unknown]
  - Pyrexia [Unknown]
